FAERS Safety Report 7251872-7 (Version None)
Quarter: 2011Q1

REPORT INFORMATION
  Report Type: 
  Country: None (occurrence: None)
  Receive Date: 20110128
  Receipt Date: 20100105
  Transmission Date: 20110831
  Serious: No
  Sender: FDA-Public Use
  Company Number: US-ABBOTT-10P-163-0618392-00

PATIENT
  Sex: Female
  Weight: 57.658 kg

DRUGS (5)
  1. NEXIUM [Concomitant]
     Indication: GASTROOESOPHAGEAL REFLUX DISEASE
  2. HUMIRA [Suspect]
     Indication: PSORIASIS
     Route: 058
     Dates: start: 20090701, end: 20091001
  3. HUMIRA [Suspect]
     Route: 058
     Dates: start: 20091001
  4. CHANTIX [Suspect]
     Indication: EX-TOBACCO USER
     Dates: start: 20100101
  5. LIPITOR [Concomitant]
     Indication: BLOOD CHOLESTEROL INCREASED

REACTIONS (5)
  - DRUG INEFFECTIVE [None]
  - NAUSEA [None]
  - INJECTION SITE PAIN [None]
  - PRURITUS [None]
  - PSORIASIS [None]
